FAERS Safety Report 15431578 (Version 2)
Quarter: 2018Q3

REPORT INFORMATION
  Report Type: Spontaneous
  Country: BR (occurrence: BR)
  Receive Date: 20180926
  Receipt Date: 20180928
  Transmission Date: 20181010
  Serious: Yes (Other)
  Sender: FDA-Public Use
  Company Number: BR-PFIZER INC-2018384345

PATIENT
  Age: 66 Year
  Sex: Female

DRUGS (1)
  1. LORAX [Suspect]
     Active Substance: LORAZEPAM
     Indication: HYPOTONIA

REACTIONS (14)
  - Memory impairment [Not Recovered/Not Resolved]
  - Cardiac disorder [Unknown]
  - Thyroid mass [Not Recovered/Not Resolved]
  - Panic disorder [Not Recovered/Not Resolved]
  - Dysphagia [Unknown]
  - Inflammation [Unknown]
  - Diabetes mellitus [Not Recovered/Not Resolved]
  - Hypertension [Not Recovered/Not Resolved]
  - Pain [Not Recovered/Not Resolved]
  - Drug ineffective [Unknown]
  - Motor dysfunction [Unknown]
  - Thinking abnormal [Unknown]
  - Dependence [Unknown]
  - Suicidal ideation [Unknown]
